FAERS Safety Report 10029664 (Version 1)
Quarter: 2014Q1

REPORT INFORMATION
  Report Type: Spontaneous
  Country: US (occurrence: US)
  Receive Date: 20140322
  Receipt Date: 20140322
  Transmission Date: 20141002
  Serious: No
  Sender: FDA-Public Use
  Company Number: US-009507513-1403USA004566

PATIENT
  Sex: Male

DRUGS (1)
  1. MIRALAX [Suspect]
     Indication: CONSTIPATION
     Dosage: 25.5 G, QPM
     Route: 048
     Dates: start: 20140306

REACTIONS (3)
  - Overdose [Unknown]
  - Wrong technique in drug usage process [Unknown]
  - Drug ineffective [Unknown]
